FAERS Safety Report 8339300-1 (Version None)
Quarter: 2012Q2

REPORT INFORMATION
  Report Type: 
  Country: None (occurrence: None)
  Receive Date: 20120507
  Receipt Date: 20120424
  Transmission Date: 20120825
  Serious: Yes (Hospitalization)
  Sender: FDA-Public Use
  Company Number: US-JNJFOC-20120406749

PATIENT
  Sex: Male
  Weight: 29.7 kg

DRUGS (11)
  1. OXYCODONE/ACETAMINOPHEN [Concomitant]
  2. OMEPRAZOLE [Concomitant]
  3. ANTIBIOTICS [Concomitant]
  4. PREDNISONE TAB [Concomitant]
  5. IRON [Concomitant]
  6. MESALAMINE [Concomitant]
  7. LOPERAMIDE [Concomitant]
  8. REMICADE [Suspect]
     Indication: INFLAMMATORY BOWEL DISEASE
     Route: 042
     Dates: start: 20050921
  9. HUMIRA [Concomitant]
     Dates: start: 20080319
  10. FAMOTIDINE [Concomitant]
  11. AZATHIOPRINE [Concomitant]

REACTIONS (1)
  - RESECTION OF RECTUM [None]
